FAERS Safety Report 17911259 (Version 1)
Quarter: 2020Q3

REPORT INFORMATION
  Report Type: Spontaneous
  Country: DK (occurrence: DK)
  Receive Date: 20200618
  Receipt Date: 20200618
  Transmission Date: 20201105
  Serious: Yes (Other)
  Sender: FDA-Public Use
  Company Number: DK-ROCHE-2618409

PATIENT
  Age: 38 Year
  Sex: Male

DRUGS (2)
  1. PEMETREXED. [Suspect]
     Active Substance: PEMETREXED
     Indication: NON-SMALL CELL LUNG CANCER STAGE IV
     Dosage: 500 MG/M2, CYCLICAL
     Route: 042
     Dates: start: 201706
  2. ALECTINIB. [Suspect]
     Active Substance: ALECTINIB
     Indication: NON-SMALL CELL LUNG CANCER STAGE IV
     Route: 065

REACTIONS (11)
  - Toxicity to various agents [Unknown]
  - Metastases to lymph nodes [Unknown]
  - Aspartate aminotransferase increased [Unknown]
  - Metastases to liver [Unknown]
  - Therapy partial responder [Unknown]
  - Blood creatinine increased [Unknown]
  - Alanine aminotransferase increased [Unknown]
  - Intentional product use issue [Unknown]
  - Malignant neoplasm progression [Unknown]
  - Off label use [Unknown]
  - Metastases to kidney [Unknown]

NARRATIVE: CASE EVENT DATE: 201710
